FAERS Safety Report 26131746 (Version 1)
Quarter: 2025Q4

REPORT INFORMATION
  Report Type: Spontaneous
  Country: JP (occurrence: JP)
  Receive Date: 20251208
  Receipt Date: 20251208
  Transmission Date: 20260117
  Serious: Yes (Death, Other)
  Sender: ROCHE
  Company Number: JP-CHUGAI-2025039856

PATIENT
  Age: 69 Year
  Sex: Male

DRUGS (2)
  1. TECENTRIQ [Suspect]
     Active Substance: ATEZOLIZUMAB
     Indication: Bladder cancer
     Dosage: UNK
     Route: 042
  2. RITUXIMAB [Suspect]
     Active Substance: RITUXIMAB
     Indication: Immune thrombocytopenia
     Route: 065

REACTIONS (6)
  - Infection [Fatal]
  - Arrhythmia [Unknown]
  - Cytokine release syndrome [Recovering/Resolving]
  - Anaemia [Recovering/Resolving]
  - Immune thrombocytopenia [Recovered/Resolved]
  - Off label use [Unknown]
